FAERS Safety Report 24666840 (Version 3)
Quarter: 2025Q1

REPORT INFORMATION
  Report Type: Spontaneous
  Country: US (occurrence: US)
  Receive Date: 20241126
  Receipt Date: 20250207
  Transmission Date: 20250408
  Serious: No
  Sender: SANOFI AVENTIS
  Company Number: US-SANOFI-02313506

PATIENT
  Age: 69 Year
  Sex: Male

DRUGS (11)
  1. DUPIXENT [Suspect]
     Active Substance: DUPILUMAB
     Indication: Psoriasis
     Route: 058
  2. DUPIXENT [Suspect]
     Active Substance: DUPILUMAB
     Indication: Dermatitis atopic
     Dosage: 300 MG, QOW
     Route: 058
  3. DUPIXENT [Suspect]
     Active Substance: DUPILUMAB
     Dates: start: 202411, end: 202411
  4. DUPIXENT [Suspect]
     Active Substance: DUPILUMAB
     Dosage: 300 MG, QOW
     Dates: start: 2024
  5. FENOFIBRATE [Concomitant]
     Active Substance: FENOFIBRATE
  6. ROSUVASTATIN [Concomitant]
     Active Substance: ROSUVASTATIN
     Indication: Blood cholesterol abnormal
  7. VALIUM [Concomitant]
     Active Substance: DIAZEPAM
     Indication: Spinal cord abscess
  8. VALIUM [Concomitant]
     Active Substance: DIAZEPAM
     Indication: Sleep disorder
  9. GLIPIZIDE [Concomitant]
     Active Substance: GLIPIZIDE
  10. LISINOPRIL [Concomitant]
     Active Substance: LISINOPRIL
  11. TRULICITY [Concomitant]
     Active Substance: DULAGLUTIDE

REACTIONS (8)
  - Dry skin [Unknown]
  - Influenza [Unknown]
  - Skin irritation [Unknown]
  - Skin exfoliation [Not Recovered/Not Resolved]
  - Incorrect dose administered [Unknown]
  - Off label use [Unknown]
  - Accidental exposure to product [Unknown]
  - Exposure via skin contact [Unknown]

NARRATIVE: CASE EVENT DATE: 20241101
